FAERS Safety Report 16569216 (Version 2)
Quarter: 2019Q3

REPORT INFORMATION
  Report Type: Spontaneous
  Country: CA (occurrence: CA)
  Receive Date: 20190714
  Receipt Date: 20190921
  Transmission Date: 20191004
  Serious: Yes (Life-Threatening, Disabling)
  Sender: FDA-Public Use
  Company Number: CA-009507513-1907CAN005043

PATIENT
  Sex: Female

DRUGS (4)
  1. ZOCOR [Suspect]
     Active Substance: SIMVASTATIN
     Dosage: UNK
     Route: 048
  2. ASPIRIN. [Suspect]
     Active Substance: ASPIRIN
  3. COBALAMIN [Suspect]
     Active Substance: COBALAMIN
  4. VITAMIN D (UNSPECIFIED) [Suspect]
     Active Substance: VITAMIN D NOS

REACTIONS (11)
  - Depression [Unknown]
  - Myalgia [Unknown]
  - Chromaturia [Unknown]
  - Throat irritation [Unknown]
  - Muscle twitching [Unknown]
  - Dizziness [Unknown]
  - Fatigue [Unknown]
  - Throat tightness [Unknown]
  - Gait inability [Unknown]
  - Abdominal pain [Unknown]
  - Nausea [Unknown]

NARRATIVE: CASE EVENT DATE: 20190209
